FAERS Safety Report 7338326-4 (Version None)
Quarter: 2011Q1

REPORT INFORMATION
  Report Type: 
  Country: None (occurrence: None)
  Receive Date: 20110224
  Receipt Date: 20110216
  Transmission Date: 20110831
  Serious: Yes (Hospitalization)
  Sender: FDA-Public Use
  Company Number: TAJPN-10-0552

PATIENT
  Age: 56 Year
  Sex: Female

DRUGS (3)
  1. ABRAXANE [Suspect]
     Indication: BREAST CANCER
     Dosage: 300, 240, 200  MG
     Dates: start: 20100930, end: 20100930
  2. ABRAXANE [Suspect]
     Indication: BREAST CANCER
     Dosage: 300, 240, 200  MG
     Dates: start: 20101110, end: 20101110
  3. ABRAXANE [Suspect]
     Indication: BREAST CANCER
     Dosage: 300, 240, 200  MG
     Dates: start: 20101021, end: 20101021

REACTIONS (7)
  - ASPARTATE AMINOTRANSFERASE INCREASED [None]
  - HEPATIC FUNCTION ABNORMAL [None]
  - BLOOD BILIRUBIN INCREASED [None]
  - NEUROPATHY PERIPHERAL [None]
  - HAEMOGLOBIN DECREASED [None]
  - ALANINE AMINOTRANSFERASE INCREASED [None]
  - WHITE BLOOD CELL COUNT DECREASED [None]
